FAERS Safety Report 7814498-X (Version None)
Quarter: 2011Q4

REPORT INFORMATION
  Report Type: 
  Country: None (occurrence: None)
  Receive Date: 20111014
  Receipt Date: 20111013
  Transmission Date: 20120403
  Serious: Yes (Death)
  Sender: FDA-Public Use
  Company Number: PHHY2011US90197

PATIENT

DRUGS (1)
  1. CARBAMAZEPINE [Suspect]
     Route: 064

REACTIONS (2)
  - DEATH NEONATAL [None]
  - MATERNAL EXPOSURE DURING PREGNANCY [None]
